FAERS Safety Report 6422262-1 (Version None)
Quarter: 2009Q4

REPORT INFORMATION
  Report Type: 
  Country: None (occurrence: None)
  Receive Date: 20091030
  Receipt Date: 20091021
  Transmission Date: 20100525
  Serious: Yes (Hospitalization, Other)
  Sender: FDA-Public Use
  Company Number: US-RB-019581-09

PATIENT
  Age: 27 Year
  Sex: Female

DRUGS (3)
  1. SUBOXONE [Suspect]
     Route: 060
     Dates: start: 20090101
  2. SUBOXONE [Suspect]
     Route: 065
  3. REBIF [Suspect]
     Indication: MULTIPLE SCLEROSIS
     Dosage: TAKES UNKNOWN DOSE EVERY OTHER DAY
     Route: 058
     Dates: start: 20090801

REACTIONS (13)
  - BREAST MASS [None]
  - CHEST PAIN [None]
  - CHILLS [None]
  - EYE PAIN [None]
  - EYE SWELLING [None]
  - FATIGUE [None]
  - HYPERHIDROSIS [None]
  - LOSS OF CONSCIOUSNESS [None]
  - MULTIPLE SCLEROSIS [None]
  - PAIN [None]
  - PYREXIA [None]
  - SKIN BURNING SENSATION [None]
  - SOMNOLENCE [None]
